FAERS Safety Report 15087465 (Version 2)
Quarter: 2018Q3

REPORT INFORMATION
  Report Type: Report from Study
  Country: None (occurrence: US)
  Receive Date: 20180628
  Receipt Date: 20180814
  Transmission Date: 20181010
  Serious: Yes (Hospitalization, Disabling)
  Sender: FDA-Public Use
  Company Number: US-ABBVIE-18K-163-2402865-00

PATIENT
  Age: 84 Year
  Sex: Female
  Weight: 69.92 kg

DRUGS (2)
  1. METHOTREXATE. [Concomitant]
     Active Substance: METHOTREXATE
     Indication: RHEUMATOID ARTHRITIS
  2. HUMIRA [Suspect]
     Active Substance: ADALIMUMAB
     Indication: RHEUMATOID ARTHRITIS
     Route: 058
     Dates: end: 201803

REACTIONS (3)
  - Kidney infection [Unknown]
  - Gait inability [Not Recovered/Not Resolved]
  - Vertebral column mass [Not Recovered/Not Resolved]

NARRATIVE: CASE EVENT DATE: 20180103
